FAERS Safety Report 5213189-1 (Version None)
Quarter: 2007Q1

REPORT INFORMATION
  Report Type: 
  Country: None (occurrence: None)
  Receive Date: 20070119
  Receipt Date: 20070117
  Transmission Date: 20070707
  Serious: Yes (Death, Life-Threatening)
  Sender: FDA-Public Use
  Company Number: FR-GLAXOSMITHKLINE-B0453537A

PATIENT
  Age: 49 Year
  Sex: Male

DRUGS (12)
  1. EPIVIR [Suspect]
     Indication: HIV INFECTION
     Dosage: 300MG PER DAY
     Route: 048
     Dates: start: 20061116
  2. ZIAGEN [Suspect]
     Indication: HIV INFECTION
     Dosage: 600MG PER DAY
     Route: 048
     Dates: start: 20061116
  3. NORVIR [Suspect]
     Indication: HIV INFECTION
     Route: 048
     Dates: start: 20061116
  4. TRIFLUCAN [Suspect]
     Dosage: 50MG PER DAY
     Route: 048
     Dates: start: 20061201, end: 20061214
  5. MOXIFLOXACIN HYDROCHLORIDE [Suspect]
     Indication: MYCOBACTERIAL INFECTION
     Dosage: 400MG PER DAY
     Route: 048
     Dates: start: 20061128, end: 20061211
  6. REYATAZ [Suspect]
     Indication: HIV INFECTION
     Route: 048
     Dates: start: 20061116
  7. BACTRIM [Suspect]
     Route: 065
     Dates: start: 20060101, end: 20061204
  8. CLARITHROMYCIN [Concomitant]
     Indication: MYCOBACTERIAL INFECTION
     Route: 065
     Dates: start: 20061010
  9. ETHAMBUTOL HCL [Concomitant]
     Indication: MYCOBACTERIAL INFECTION
     Route: 065
     Dates: start: 20061010
  10. VALGANCICLOVIR HCL [Concomitant]
     Indication: CYTOMEGALOVIRUS INFECTION
     Route: 065
     Dates: start: 20061128, end: 20061204
  11. PRAZEPAM [Concomitant]
     Route: 065
     Dates: start: 20061129, end: 20061204
  12. EFFEXOR [Concomitant]
     Route: 065
     Dates: start: 20061129, end: 20061204

REACTIONS (8)
  - AGRANULOCYTOSIS [None]
  - GENERAL PHYSICAL HEALTH DETERIORATION [None]
  - HAEMOGLOBIN DECREASED [None]
  - NEUTROPHIL COUNT DECREASED [None]
  - PANCYTOPENIA [None]
  - PLATELET COUNT DECREASED [None]
  - WEIGHT DECREASED [None]
  - WHITE BLOOD CELL COUNT DECREASED [None]
